FAERS Safety Report 22211447 (Version 1)
Quarter: 2023Q2

REPORT INFORMATION
  Report Type: Spontaneous
  Country: CA (occurrence: CA)
  Receive Date: 20230414
  Receipt Date: 20230414
  Transmission Date: 20230722
  Serious: Yes (Hospitalization, Other)
  Sender: FDA-Public Use
  Company Number: CA-BAYER-2023A048813

PATIENT
  Age: 30 Year
  Sex: Female

DRUGS (18)
  1. YAZ [Suspect]
     Active Substance: DROSPIRENONE\ETHINYL ESTRADIOL
     Dosage: UNK
     Route: 048
     Dates: start: 20090503, end: 201002
  2. YAZ [Suspect]
     Active Substance: DROSPIRENONE\ETHINYL ESTRADIOL
     Dosage: UNK
     Route: 048
     Dates: start: 20090430, end: 20091111
  3. ASPIRIN [Concomitant]
     Active Substance: ASPIRIN
  4. LIPITOR [Concomitant]
     Active Substance: ATORVASTATIN CALCIUM
  5. NORVASC [Concomitant]
     Active Substance: AMLODIPINE BESYLATE
  6. NORVASC [Concomitant]
     Active Substance: AMLODIPINE BESYLATE
  7. PANTOPRAZOLE SODIUM [Concomitant]
     Active Substance: PANTOPRAZOLE SODIUM
  8. BISOPROLOL FUMARATE [Concomitant]
     Active Substance: BISOPROLOL FUMARATE
  9. TELMISARTAN [Concomitant]
     Active Substance: TELMISARTAN
  10. NAPROXEN [Concomitant]
     Active Substance: NAPROXEN
     Dosage: UNK
     Dates: start: 20180309
  11. OXYCODONE HYDROCHLORIDE [Concomitant]
     Active Substance: OXYCODONE HYDROCHLORIDE
     Dosage: UNK
     Dates: start: 20180309
  12. PANTOPRAZOLE [Concomitant]
     Active Substance: PANTOPRAZOLE
     Dosage: UNK
     Dates: start: 20190709
  13. BISOPROLOL FUMARATE [Concomitant]
     Active Substance: BISOPROLOL FUMARATE
     Dosage: UNK
     Dates: start: 20090709
  14. PLAVIX [Concomitant]
     Active Substance: CLOPIDOGREL BISULFATE
     Dosage: UNK
     Dates: start: 20190709
  15. ASPIRIN [Concomitant]
     Active Substance: ASPIRIN
  16. BISACODYL [Concomitant]
     Active Substance: BISACODYL
  17. PRAMOCAINE;ZINC [Concomitant]
  18. AMLODIPINE [Concomitant]
     Active Substance: AMLODIPINE BESYLATE
     Dosage: UNK
     Dates: start: 20100226

REACTIONS (10)
  - Myocardial infarction [None]
  - Angina unstable [None]
  - Dyslipidaemia [None]
  - Arteriosclerosis coronary artery [None]
  - Chest pain [None]
  - Dyspnoea [None]
  - Asthma [None]
  - Gastrooesophageal reflux disease [None]
  - Ovarian cyst [None]
  - Calculus urinary [None]

NARRATIVE: CASE EVENT DATE: 20091109
